FAERS Safety Report 23732041 (Version 1)
Quarter: 2024Q2

REPORT INFORMATION
  Report Type: Spontaneous
  Country: GB (occurrence: None)
  Receive Date: 20240411
  Receipt Date: 20240411
  Transmission Date: 20240716
  Serious: Yes (Other)
  Sender: FDA-Public Use
  Company Number: 2024A085352

PATIENT
  Age: 31 Year
  Sex: Female
  Weight: 72 kg

DRUGS (7)
  1. QUETIAPINE [Suspect]
     Active Substance: QUETIAPINE
     Indication: Depression
     Dosage: 25 MG ONCE A DAY AT NIGHT
     Dates: start: 2017
  2. QUETIAPINE [Suspect]
     Active Substance: QUETIAPINE
     Indication: Insomnia
     Dosage: 25 MG ONCE A DAY AT NIGHT
     Dates: start: 2017
  3. QUETIAPINE [Suspect]
     Active Substance: QUETIAPINE
     Indication: Depression
     Dosage: 25 MG ONCE A DAY AT NIGHT
     Dates: start: 202311, end: 202403
  4. QUETIAPINE [Suspect]
     Active Substance: QUETIAPINE
     Indication: Insomnia
     Dosage: 25 MG ONCE A DAY AT NIGHT
     Dates: start: 202311, end: 202403
  5. CITALOPRAM [Concomitant]
     Active Substance: CITALOPRAM\CITALOPRAM HYDROBROMIDE
     Indication: Depression
  6. SSRI SEROPRAM [Concomitant]
     Indication: Insomnia
     Dosage: 40 MG/ML 15 DROPS
     Dates: start: 202311, end: 202403
  7. SSRI SEROPRAM [Concomitant]
     Indication: Depression
     Dosage: 40 MG/ML 15 DROPS
     Dates: start: 202311, end: 202403

REACTIONS (4)
  - Eye pain [Not Recovered/Not Resolved]
  - Headache [Recovered/Resolved]
  - Hydrometra [Unknown]
  - Blood prolactin increased [Unknown]

NARRATIVE: CASE EVENT DATE: 20240101
